FAERS Safety Report 6971248-7 (Version None)
Quarter: 2010Q3

REPORT INFORMATION
  Report Type: 
  Country: None (occurrence: None)
  Receive Date: 20100908
  Receipt Date: 20100831
  Transmission Date: 20110219
  Serious: Yes (Other)
  Sender: FDA-Public Use
  Company Number: JP-BRISTOL-MYERS SQUIBB COMPANY-15224991

PATIENT
  Age: 35 Year
  Sex: Female

DRUGS (2)
  1. ABILIFY [Suspect]
     Indication: MAJOR DEPRESSION
     Dosage: DISCONTINUED TENTATIVELY AND TREATED WITH LITHIUM CARBONATE.
     Route: 048
     Dates: start: 20100706, end: 20100720
  2. SERTRALINE HYDROCHLORIDE [Concomitant]
     Indication: MAJOR DEPRESSION
     Dosage: 11MAY10:DOSE INCREASED TO 50MG 25MAY10:DOSE INCREASED TO 75MG INCREASED TO 100MG+DECREASED TO 75MG
     Dates: start: 20100423

REACTIONS (1)
  - MANIA [None]
